FAERS Safety Report 6046133-8 (Version None)
Quarter: 2009Q1

REPORT INFORMATION
  Report Type: 
  Country: None (occurrence: None)
  Receive Date: 20090121
  Receipt Date: 20090121
  Transmission Date: 20090719
  Serious: Yes (Hospitalization)
  Sender: FDA-Public Use
  Company Number: None

PATIENT
  Sex: Female
  Weight: 62.1 kg

DRUGS (5)
  1. CYCLOPHOSPHAMIDE [Suspect]
     Dosage: 980 MG
  2. DOXORUBICIN HYDROCHLORIDE [Suspect]
     Dosage: 98 MG
  3. AMBIEN [Concomitant]
  4. CELEXA [Concomitant]
  5. MULTI-VITAMIN [Concomitant]

REACTIONS (2)
  - NAUSEA [None]
  - VOMITING [None]
